FAERS Safety Report 17193616 (Version 2)
Quarter: 2020Q1

REPORT INFORMATION
  Report Type: Report from Study
  Country: DE (occurrence: DE)
  Receive Date: 20191223
  Receipt Date: 20200113
  Transmission Date: 20200409
  Serious: Yes (Hospitalization)
  Sender: FDA-Public Use
  Company Number: DE-JNJFOC-20191228324

PATIENT
  Sex: Male
  Weight: 65 kg

DRUGS (7)
  1. ENTRESTO [Concomitant]
     Active Substance: SACUBITRIL\VALSARTAN
     Dosage: 49/51MG 0.5-0-0.5
     Dates: start: 20180921
  2. BICANORM [Concomitant]
     Active Substance: SODIUM BICARBONATE
     Dosage: 2 G, BID
     Dates: start: 20191115
  3. DEKRISTOL [Concomitant]
     Active Substance: CHOLECALCIFEROL
     Dosage: 20000 IU, Q2WK
     Dates: start: 20191115
  4. ELIQUIS [Concomitant]
     Active Substance: APIXABAN
     Dosage: 5 MG, QD
     Dates: start: 20191115
  5. RIVAROXABAN [Suspect]
     Active Substance: RIVAROXABAN
     Indication: PRODUCT USED FOR UNKNOWN INDICATION
     Dosage: 15 MG, QD
     Route: 048
     Dates: start: 20180914, end: 20191105
  6. BISOPROLOL [Concomitant]
     Active Substance: BISOPROLOL
     Dosage: 2.5 MG, BID
     Dates: start: 20150501
  7. TORASEMID [Concomitant]
     Active Substance: TORSEMIDE
     Dosage: 50 MG, BID
     Dates: start: 20190130

REACTIONS (1)
  - Cardiorenal syndrome [Recovered/Resolved]

NARRATIVE: CASE EVENT DATE: 20191108
